FAERS Safety Report 9163866 (Version 1)
Quarter: 2013Q1

REPORT INFORMATION
  Report Type: Spontaneous
  Country: AR (occurrence: AR)
  Receive Date: 20130314
  Receipt Date: 20130314
  Transmission Date: 20140127
  Serious: Yes (Life-Threatening, Hospitalization)
  Sender: FDA-Public Use
  Company Number: AR-UCBSA-080620

PATIENT
  Age: 77 Year
  Sex: Male

DRUGS (4)
  1. CIMZIA [Suspect]
     Indication: RHEUMATOID ARTHRITIS
     Dosage: COMPLETED INDUCTION DOSE
     Route: 058
     Dates: start: 20120912, end: 20130106
  2. METHOTREXATE [Concomitant]
     Dosage: 15 MG PER WEEK
     Route: 048
  3. FOLIC ACID [Concomitant]
     Dosage: UNKNOWN DOSE
  4. ACENOCOUMAROL [Concomitant]
     Dosage: UNKNOWN DOSE

REACTIONS (1)
  - Pleurisy [Recovering/Resolving]
